FAERS Safety Report 10017649 (Version 2)
Quarter: 2014Q1

REPORT INFORMATION
  Report Type: Spontaneous
  Country: US (occurrence: US)
  Receive Date: 20140318
  Receipt Date: 20140318
  Transmission Date: 20141002
  Serious: Yes (Hospitalization)
  Sender: FDA-Public Use
  Company Number: US-BRISTOL-MYERS SQUIBB COMPANY-17419714

PATIENT
  Age: 65 Year
  Sex: Male

DRUGS (1)
  1. ERBITUX [Suspect]
     Indication: RECTAL CANCER METASTATIC
     Dosage: 400MG/M2 DAY 1?250MG/M2 DAYS 8 AND 15
     Route: 042
     Dates: start: 20130220, end: 20130220

REACTIONS (1)
  - Anaphylactoid reaction [Recovered/Resolved]
